FAERS Safety Report 5483389-4 (Version None)
Quarter: 2007Q4

REPORT INFORMATION
  Report Type: 
  Country: None (occurrence: None)
  Receive Date: 20071009
  Receipt Date: 20071009
  Transmission Date: 20080405
  Serious: Yes (Hospitalization, Other)
  Sender: FDA-Public Use
  Company Number: None

PATIENT
  Age: 73 Year
  Sex: Female
  Weight: 68.0396 kg

DRUGS (2)
  1. TEQUIN [Suspect]
     Indication: ANTIBIOTIC PROPHYLAXIS
     Dosage: 400 MG. 1 TABLET DAILY
     Dates: start: 20041207
  2. TEQUIN [Suspect]
     Indication: ANTIBIOTIC PROPHYLAXIS
     Dosage: 400 MG. 1 TABLET DAILY
     Dates: start: 20041208

REACTIONS (5)
  - CONTRAINDICATION TO MEDICAL TREATMENT [None]
  - OSTEOARTHRITIS [None]
  - PAIN IN EXTREMITY [None]
  - SCIATICA [None]
  - SPINAL COLUMN STENOSIS [None]
